FAERS Safety Report 9253193 (Version 2)
Quarter: 2013Q2

REPORT INFORMATION
  Report Type: Spontaneous
  Country: US (occurrence: US)
  Receive Date: 20130424
  Receipt Date: 20130604
  Transmission Date: 20140414
  Serious: Yes (Other)
  Sender: FDA-Public Use
  Company Number: US-TEVA-399922USA

PATIENT
  Age: 41 Year
  Sex: Female

DRUGS (9)
  1. COPAXONE [Suspect]
     Indication: MULTIPLE SCLEROSIS
     Dates: start: 20130204
  2. LEVOTHYROID [Concomitant]
  3. CA/MG/ZINC [Concomitant]
  4. HCTZ [Concomitant]
  5. SIMVASTATIN [Concomitant]
  6. B COMPLEX [Concomitant]
  7. FISH OIL [Concomitant]
  8. VITAMIN D [Concomitant]
  9. ASPIRIN [Concomitant]

REACTIONS (5)
  - Multiple sclerosis relapse [Recovering/Resolving]
  - Vision blurred [Not Recovered/Not Resolved]
  - Muscular weakness [Not Recovered/Not Resolved]
  - Pain [Recovered/Resolved]
  - Constipation [Recovered/Resolved]
